FAERS Safety Report 25600256 (Version 2)
Quarter: 2025Q3

REPORT INFORMATION
  Report Type: Spontaneous
  Country: US (occurrence: US)
  Receive Date: 20250724
  Receipt Date: 20250908
  Transmission Date: 20251020
  Serious: No
  Sender: LUPIN
  Company Number: US-LUPIN PHARMACEUTICALS INC.-2025-06500

PATIENT
  Age: 40 Year
  Weight: 89.342 kg

DRUGS (1)
  1. LISINOPRIL AND HYDROCHLOROTHIAZIDE [Suspect]
     Active Substance: HYDROCHLOROTHIAZIDE\LISINOPRIL
     Indication: Hypertension
     Dosage: UNK, QD
     Route: 065

REACTIONS (3)
  - Pruritus [Unknown]
  - Condition aggravated [Unknown]
  - Product quality issue [Unknown]
